FAERS Safety Report 8098752-5 (Version None)
Quarter: 2012Q1

REPORT INFORMATION
  Report Type: 
  Country: None (occurrence: None)
  Receive Date: 20120131
  Receipt Date: 20120130
  Transmission Date: 20120608
  Serious: Yes (Hospitalization, Other)
  Sender: FDA-Public Use
  Company Number: US-ACTELION-A-NJ2012-59672

PATIENT

DRUGS (4)
  1. SILDENAFIL [Concomitant]
  2. TRACLEER [Suspect]
     Indication: PULMONARY ARTERIAL HYPERTENSION
     Dosage: UNK
     Route: 048
     Dates: start: 20031226
  3. COUMADIN [Suspect]
  4. TYVASO [Concomitant]

REACTIONS (3)
  - VOMITING [None]
  - LETHARGY [None]
  - SUBDURAL HAEMATOMA [None]
